FAERS Safety Report 16001398 (Version 4)
Quarter: 2019Q2

REPORT INFORMATION
  Report Type: Spontaneous
  Country: BR (occurrence: BR)
  Receive Date: 20190225
  Receipt Date: 20190405
  Transmission Date: 20190711
  Serious: Yes (Hospitalization, Other)
  Sender: FDA-Public Use
  Company Number: BR-PFIZER INC-2019064480

PATIENT
  Age: 62 Year
  Sex: Male
  Weight: 67 kg

DRUGS (6)
  1. TECTA [Concomitant]
     Active Substance: PANTOPRAZOLE MAGNESIUM
     Dosage: UNK
     Dates: start: 2009
  2. CONCARDIO [Concomitant]
     Active Substance: BISOPROLOL FUMARATE
     Dosage: UNK
     Dates: start: 2007
  3. ROCALTROL [Concomitant]
     Active Substance: CALCITRIOL
     Dosage: 1 TABLE PER DAY
  4. CARDURAN [Suspect]
     Active Substance: DOXAZOSIN MESYLATE
     Indication: BENIGN PROSTATIC HYPERPLASIA
     Dosage: 2 MG, 1X/DAY
  5. SEVELAMER HYDROCHLORIDE. [Concomitant]
     Active Substance: SEVELAMER HYDROCHLORIDE
     Dosage: 3 TABLET PER DAY
  6. SOMALGIN CARDIO [Concomitant]
     Active Substance: ASPIRIN\DIHYDROXYALUMINUM AMINOACETATE ANHYDROUS\MAGNESIUM CARBONATE
     Indication: THROMBOSIS
     Dosage: UNK
     Dates: start: 1999

REACTIONS (6)
  - Myocardial infarction [Not Recovered/Not Resolved]
  - Fracture [Recovered/Resolved with Sequelae]
  - Renal failure [Unknown]
  - Drug ineffective [Unknown]
  - Craniocerebral injury [Recovered/Resolved with Sequelae]
  - Fall [Unknown]

NARRATIVE: CASE EVENT DATE: 1993
